FAERS Safety Report 7883663-8 (Version None)
Quarter: 2011Q4

REPORT INFORMATION
  Report Type: 
  Country: None (occurrence: None)
  Receive Date: 20111102
  Receipt Date: 20111027
  Transmission Date: 20120403
  Serious: Yes (Hospitalization, Other)
  Sender: FDA-Public Use
  Company Number: US-PFIZER INC-2011263488

PATIENT
  Age: 77 Year
  Sex: Male
  Weight: 58.64 kg

DRUGS (2)
  1. REVATIO [Suspect]
     Dosage: UNK
  2. REMODULIN [Suspect]
     Indication: PULMONARY ARTERIAL HYPERTENSION
     Dosage: 8.64 UG/KG, 0.006 UG/KG/MIN
     Route: 058
     Dates: start: 20110810

REACTIONS (3)
  - SKIN LESION [None]
  - SEPSIS [None]
  - PYREXIA [None]
